FAERS Safety Report 20680853 (Version 1)
Quarter: 2022Q2

REPORT INFORMATION
  Report Type: Spontaneous
  Country: None (occurrence: US)
  Receive Date: 20220406
  Receipt Date: 20220406
  Transmission Date: 20220721
  Serious: No
  Sender: FDA-Public Use
  Company Number: US-Breckenridge Pharmaceutical, Inc.-2127465

PATIENT
  Age: 50 Year
  Sex: Female
  Weight: 61.364 kg

DRUGS (3)
  1. DULOXETINE [Suspect]
     Active Substance: DULOXETINE
     Indication: Depression
     Route: 048
  2. CITALOPRAM [Concomitant]
     Active Substance: CITALOPRAM HYDROBROMIDE
  3. DULOXETINE [Concomitant]
     Active Substance: DULOXETINE

REACTIONS (5)
  - Fatigue [Unknown]
  - Product residue present [Unknown]
  - Asthenia [Unknown]
  - Abdominal pain upper [Unknown]
  - Irritable bowel syndrome [Unknown]
